FAERS Safety Report 9571885 (Version 2)
Quarter: 2013Q4

REPORT INFORMATION
  Report Type: Spontaneous
  Country: US (occurrence: US)
  Receive Date: 20131001
  Receipt Date: 20131001
  Transmission Date: 20140711
  Serious: No
  Sender: FDA-Public Use
  Company Number: US-ABBVIE-12P-163-0946132-00

PATIENT
  Sex: Female
  Weight: 57.66 kg

DRUGS (5)
  1. KALETRA TABLETS 200MG/50MG [Suspect]
     Indication: HIV INFECTION
     Dosage: 200/50 MG TAB-TWO TABS TWICE A DAY
     Route: 048
     Dates: start: 20121219, end: 20130207
  2. COMBIVIR [Concomitant]
     Indication: HIV INFECTION
     Dosage: 150-300MG
     Dates: start: 201205
  3. IRON [Concomitant]
     Indication: VITAMIN SUPPLEMENTATION
  4. PRENATAL VITAMINS [Concomitant]
     Indication: PREGNANCY
     Dates: start: 201205
  5. BACTRIM [Concomitant]
     Indication: ANTIFUNGAL PROPHYLAXIS

REACTIONS (1)
  - Wrong technique in drug usage process [Not Recovered/Not Resolved]
